FAERS Safety Report 23520769 (Version 1)
Quarter: 2024Q1

REPORT INFORMATION
  Report Type: 
  Country: None (occurrence: None)
  Receive Date: 20240214
  Receipt Date: 20240214
  Transmission Date: 20240410
  Serious: No
  Sender: FDA-Public Use
  Company Number: DE-ROCHE-3259366

PATIENT

DRUGS (3)
  1. OCREVUS [Suspect]
     Active Substance: OCRELIZUMAB
     Dates: start: 20211221, end: 20220104
  2. OCREVUS [Suspect]
     Active Substance: OCRELIZUMAB
     Dates: start: 20220705
  3. BENSERAZIDE\LEVODOPA [Concomitant]
     Active Substance: BENSERAZIDE\LEVODOPA
     Dosage: DEFINITION OF THE INTERVAL: AS REQUIRED
     Dates: start: 2020

REACTIONS (3)
  - Depression [None]
  - Scarlet fever [None]
  - COVID-19 [None]

NARRATIVE: CASE EVENT DATE: 20220820
